FAERS Safety Report 20163485 (Version 1)
Quarter: 2021Q4

REPORT INFORMATION
  Report Type: Spontaneous
  Country: FR (occurrence: FR)
  Receive Date: 20211209
  Receipt Date: 20211209
  Transmission Date: 20220303
  Serious: Yes (Hospitalization)
  Sender: FDA-Public Use
  Company Number: None

PATIENT
  Age: 20 Year
  Sex: Female

DRUGS (3)
  1. LEVOFLOXACIN [Suspect]
     Active Substance: LEVOFLOXACIN
     Indication: Tonsillitis
     Route: 048
     Dates: start: 20210830, end: 20210903
  2. CIPROFLOXACIN [Suspect]
     Active Substance: CIPROFLOXACIN
     Indication: Tonsillitis
     Route: 048
     Dates: start: 20210829, end: 20210830
  3. AUGMENTIN [Suspect]
     Active Substance: AMOXICILLIN\CLAVULANATE POTASSIUM
     Indication: Pyelonephritis
     Route: 048
     Dates: start: 20210831, end: 20210903

REACTIONS (1)
  - Colitis [Recovering/Resolving]

NARRATIVE: CASE EVENT DATE: 20210903
